FAERS Safety Report 11932533 (Version 4)
Quarter: 2016Q1

REPORT INFORMATION
  Report Type: Spontaneous
  Country: US (occurrence: US)
  Receive Date: 20160120
  Receipt Date: 20160311
  Transmission Date: 20160526
  Serious: Yes (Hospitalization)
  Sender: FDA-Public Use
  Company Number: US-UNITED THERAPEUTICS-UNT-2016-000673

PATIENT
  Age: 43 Year
  Sex: Female
  Weight: 63.49 kg

DRUGS (1)
  1. REMODULIN [Suspect]
     Active Substance: TREPROSTINIL
     Indication: PULMONARY HYPERTENSION
     Dosage: 0.100 ?G/KG, CONTINUING
     Route: 041
     Dates: start: 20150202

REACTIONS (4)
  - Device related infection [Unknown]
  - Thrombosis in device [Recovered/Resolved]
  - Drug dose omission [Recovered/Resolved]
  - Device leakage [Recovered/Resolved]

NARRATIVE: CASE EVENT DATE: 201601
